FAERS Safety Report 5078628-8 (Version None)
Quarter: 2006Q3

REPORT INFORMATION
  Report Type: 
  Country: None (occurrence: None)
  Receive Date: 20060809
  Receipt Date: 20060809
  Transmission Date: 20061208
  Serious: Yes (Death)
  Sender: FDA-Public Use
  Company Number: None

PATIENT
  Age: 27 Year
  Sex: Male
  Weight: 109.3169 kg

DRUGS (1)
  1. PROPOFOL [Suspect]
     Route: 041

REACTIONS (9)
  - AGITATION [None]
  - ATRIAL FIBRILLATION [None]
  - BLOOD CREATINE PHOSPHOKINASE INCREASED [None]
  - BLOOD PRESSURE INCREASED [None]
  - GENERAL PHYSICAL HEALTH DETERIORATION [None]
  - MYOGLOBIN BLOOD INCREASED [None]
  - PROPOFOL INFUSION SYNDROME [None]
  - TACHYCARDIA [None]
  - TROPONIN INCREASED [None]
